FAERS Safety Report 8938965 (Version 1)
Quarter: 2012Q4

REPORT INFORMATION
  Report Type: 
  Country: US (occurrence: US)
  Receive Date: 20121121
  Receipt Date: 20121121
  Transmission Date: 20130627
  Serious: Yes (Death)
  Sender: FDA-Public Use
  Company Number: US-ASTELLAS-1089352

PATIENT
  Sex: Male

DRUGS (3)
  1. TARCEVA [Suspect]
     Indication: NON-SMALL CELL LUNG CANCER
     Route: 048
     Dates: start: 20050117, end: 20050203
  2. TARCEVA [Suspect]
     Indication: BRONCHIAL CARCINOMA
  3. TARCEVA [Suspect]
     Indication: LUNG NEOPLASM MALIGNANT

REACTIONS (3)
  - Non-small cell lung cancer [Fatal]
  - Metastases to central nervous system [Fatal]
  - Metastases to bone [Fatal]
